FAERS Safety Report 7722249-2 (Version None)
Quarter: 2011Q3

REPORT INFORMATION
  Report Type: 
  Country: None (occurrence: None)
  Receive Date: 20110831
  Receipt Date: 20110823
  Transmission Date: 20111222
  Serious: Yes (Hospitalization)
  Sender: FDA-Public Use
  Company Number: ES-ELI_LILLY_AND_COMPANY-ES201108007554

PATIENT
  Sex: Male

DRUGS (3)
  1. BYETTA [Suspect]
     Indication: TYPE 2 DIABETES MELLITUS
     Dosage: 5 UG, UNK
  2. LIRAGLUTIDE [Concomitant]
  3. BYETTA [Suspect]
     Dosage: 10 UG, UNK

REACTIONS (3)
  - SKIN LESION [None]
  - DERMATITIS [None]
  - FUNGAL INFECTION [None]
